FAERS Safety Report 12079975 (Version 8)
Quarter: 2018Q2

REPORT INFORMATION
  Report Type: Spontaneous
  Country: BR (occurrence: BR)
  Receive Date: 20160216
  Receipt Date: 20180611
  Transmission Date: 20180711
  Serious: Yes (Other)
  Sender: FDA-Public Use
  Company Number: BR-JNJFOC-20160211114

PATIENT
  Age: 42 Year
  Sex: Female
  Weight: 60 kg

DRUGS (13)
  1. SIMPONI [Suspect]
     Active Substance: GOLIMUMAB
     Indication: RHEUMATOID ARTHRITIS
     Route: 058
     Dates: start: 20150901
  2. SIMPONI [Suspect]
     Active Substance: GOLIMUMAB
     Indication: RHEUMATOID ARTHRITIS
     Route: 058
     Dates: start: 20151024
  3. BETAMETHASONE. [Concomitant]
     Active Substance: BETAMETHASONE
     Route: 065
  4. FOLIC ACID. [Suspect]
     Active Substance: FOLIC ACID
     Indication: PRODUCT USED FOR UNKNOWN INDICATION
     Route: 065
     Dates: start: 201706
  5. FAMOTIDINE. [Concomitant]
     Active Substance: FAMOTIDINE
     Route: 065
  6. CIMICIFUGA RACEMOSA [Concomitant]
     Route: 065
  7. METHOTREXATE. [Suspect]
     Active Substance: METHOTREXATE
     Indication: PRODUCT USED FOR UNKNOWN INDICATION
     Route: 065
     Dates: start: 201706
  8. CYCLOBENZAPRINE. [Concomitant]
     Active Substance: CYCLOBENZAPRINE
     Route: 065
  9. KETOPROFEN. [Concomitant]
     Active Substance: KETOPROFEN
     Route: 065
  10. DEPAKOTE [Concomitant]
     Active Substance: DIVALPROEX SODIUM
     Route: 065
  11. POLYACRYLIC ACID [Concomitant]
     Route: 065
  12. DEFLAZACORT [Concomitant]
     Active Substance: DEFLAZACORT
     Route: 065
  13. NIMESULIDE [Concomitant]
     Active Substance: NIMESULIDE
     Route: 065

REACTIONS (16)
  - Peripheral swelling [Unknown]
  - Dizziness [Unknown]
  - Medication error [Unknown]
  - Menopause [Unknown]
  - Nasopharyngitis [Unknown]
  - Headache [Unknown]
  - Weight increased [Unknown]
  - Underdose [Unknown]
  - Seasonal allergy [Unknown]
  - Accidental exposure to product [Unknown]
  - Nausea [Unknown]
  - Product availability issue [Unknown]
  - Rheumatoid arthritis [Not Recovered/Not Resolved]
  - Muscular weakness [Unknown]
  - Therapeutic response decreased [Unknown]
  - Drug dose omission [Unknown]

NARRATIVE: CASE EVENT DATE: 20160122
